FAERS Safety Report 23945658 (Version 1)
Quarter: 2024Q2

REPORT INFORMATION
  Report Type: Spontaneous
  Country: US (occurrence: None)
  Receive Date: 20240605
  Receipt Date: 20240605
  Transmission Date: 20240715
  Serious: Yes (unspecified)
  Sender: FDA-Public Use
  Company Number: None

PATIENT
  Age: 63 Year
  Sex: Male

DRUGS (1)
  1. CAPECITABINE [Suspect]
     Active Substance: CAPECITABINE
     Indication: Neoplasm malignant
     Dates: start: 20240229

REACTIONS (2)
  - Palmar-plantar erythrodysaesthesia syndrome [None]
  - Onycholysis [None]

NARRATIVE: CASE EVENT DATE: 20240605
